FAERS Safety Report 20432483 (Version 1)
Quarter: 2022Q1

REPORT INFORMATION
  Report Type: Report from Study
  Country: IT (occurrence: IT)
  Receive Date: 20220204
  Receipt Date: 20220204
  Transmission Date: 20220423
  Serious: Yes (Other)
  Sender: FDA-Public Use
  Company Number: None

PATIENT
  Age: 79 Year
  Sex: Female

DRUGS (7)
  1. CLOPIDOGREL [Suspect]
     Active Substance: CLOPIDOGREL BISULFATE
     Dosage: 75 MG
     Route: 048
     Dates: start: 20210101, end: 20211219
  2. ENOXAPARIN [Suspect]
     Active Substance: ENOXAPARIN
     Dosage: 4000 KU
     Route: 058
     Dates: start: 20210101, end: 20211219
  3. PANTOPRAZOLE SODIUM [Concomitant]
     Active Substance: PANTOPRAZOLE SODIUM
     Dosage: 20 ,MG
  4. DOBETIN [Concomitant]
     Dosage: DOBETIN 1000 MICROGRAMMI/ML SOLUZIONE INIETTABILE, 1000 MCG/ML
  5. RANEXA [Concomitant]
     Active Substance: RANOLAZINE
     Dosage: 500 MG
  6. ATORVASTATIN [Concomitant]
     Active Substance: ATORVASTATIN
     Dosage: 40 MG
  7. FUROSEMIDE [Concomitant]
     Active Substance: FUROSEMIDE
     Dosage: 25 MG

REACTIONS (2)
  - Haematemesis [Not Recovered/Not Resolved]
  - Gastrointestinal haemorrhage [Not Recovered/Not Resolved]

NARRATIVE: CASE EVENT DATE: 20211219
